FAERS Safety Report 10919584 (Version 2)
Quarter: 2015Q2

REPORT INFORMATION
  Report Type: Spontaneous
  Country: US (occurrence: US)
  Receive Date: 20150317
  Receipt Date: 20150526
  Transmission Date: 20150821
  Serious: No
  Sender: FDA-Public Use
  Company Number: US-JNJFOC-20130318935

PATIENT
  Age: 42 Year
  Sex: Male
  Weight: 83.92 kg

DRUGS (3)
  1. PREZISTA [Suspect]
     Active Substance: DARUNAVIR ETHANOLATE
     Indication: HIV INFECTION
     Route: 048
     Dates: start: 201301
  2. PREZISTA [Suspect]
     Active Substance: DARUNAVIR ETHANOLATE
     Indication: HIV INFECTION
     Route: 048
     Dates: start: 2008, end: 201301
  3. PRAVASTATIN [Concomitant]
     Active Substance: PRAVASTATIN\PRAVASTATIN SODIUM
     Indication: BLOOD CHOLESTEROL INCREASED

REACTIONS (1)
  - Drug dose omission [Recovered/Resolved]

NARRATIVE: CASE EVENT DATE: 201301
